FAERS Safety Report 4328628-8 (Version None)
Quarter: 2004Q1

REPORT INFORMATION
  Report Type: 
  Country: None (occurrence: None)
  Receive Date: 20040323
  Receipt Date: 20040304
  Transmission Date: 20041129
  Serious: Yes (Other)
  Sender: FDA-Public Use
  Company Number: 235744

PATIENT
  Sex: Male

DRUGS (1)
  1. NOVOSEVEN [Suspect]
     Indication: FACTOR VII DEFICIENCY
     Dosage: INTRAVENOUS
     Route: 042

REACTIONS (4)
  - BLINDNESS UNILATERAL [None]
  - BLOOD PRESSURE IMMEASURABLE [None]
  - CEREBROVASCULAR ACCIDENT [None]
  - PULSE ABSENT [None]
